FAERS Safety Report 8237076-X (Version None)
Quarter: 2012Q1

REPORT INFORMATION
  Report Type: 
  Country: None (occurrence: None)
  Receive Date: 20120327
  Receipt Date: 20120320
  Transmission Date: 20120608
  Serious: Yes (Hospitalization)
  Sender: FDA-Public Use
  Company Number: BR-PFIZER INC-2012072585

PATIENT
  Age: 47 Year
  Sex: Female

DRUGS (2)
  1. LYRICA [Suspect]
     Indication: SPINAL COLUMN INJURY
     Dosage: 75 MG, 1X/DAY
     Route: 048
     Dates: start: 20111201
  2. DAIVOBET [Concomitant]
     Indication: PSORIASIS
     Dosage: UNK

REACTIONS (2)
  - INTERVERTEBRAL DISC PROTRUSION [None]
  - PAIN [None]
